FAERS Safety Report 7969484-6 (Version None)
Quarter: 2011Q4

REPORT INFORMATION
  Report Type: 
  Country: None (occurrence: None)
  Receive Date: 20111212
  Receipt Date: 20111201
  Transmission Date: 20120403
  Serious: Yes (Death, Congenital Anomaly)
  Sender: FDA-Public Use
  Company Number: DE-BIOGENIDEC-2011BI045634

PATIENT

DRUGS (2)
  1. AVONEX [Suspect]
     Indication: EXPOSURE VIA FATHER
     Dates: start: 20090901
  2. LEVOTHYROXINE SODIUM [Concomitant]
     Indication: FOETAL EXPOSURE TIMING UNSPECIFIED
     Route: 064

REACTIONS (1)
  - TRISOMY 18 [None]
